FAERS Safety Report 7138124-0 (Version None)
Quarter: 2010Q4

REPORT INFORMATION
  Report Type: 
  Country: None (occurrence: None)
  Receive Date: 20101201
  Receipt Date: 20101201
  Transmission Date: 20110411
  Serious: Yes (Death, Hospitalization)
  Sender: FDA-Public Use
  Company Number: None

PATIENT
  Age: 75 Year
  Sex: Male

DRUGS (15)
  1. REVLIMID [Suspect]
     Indication: MYELOFIBROSIS
     Dosage: REVLIMID DAILY ORALLY
     Route: 048
     Dates: start: 20090301, end: 20100101
  2. . [Concomitant]
  3. . [Concomitant]
  4. . [Concomitant]
  5. PROCRIT [Concomitant]
  6. ALLOPURINOL [Concomitant]
  7. NORVASC [Concomitant]
  8. TERAZOSIN HCL [Concomitant]
  9. PREDNISONE [Concomitant]
  10. LASIX [Concomitant]
  11. GLIPIZIDE [Concomitant]
  12. MTP [Concomitant]
  13. GABAPENTIN [Concomitant]
  14. ZOCOR [Concomitant]
  15. M.V.I. [Concomitant]

REACTIONS (3)
  - ANGINA PECTORIS [None]
  - HAEMOGLOBIN DECREASED [None]
  - PANCYTOPENIA [None]
